FAERS Safety Report 6385416-9 (Version None)
Quarter: 2009Q4

REPORT INFORMATION
  Report Type: 
  Country: None (occurrence: None)
  Receive Date: 20091002
  Receipt Date: 20080904
  Transmission Date: 20100525
  Serious: Yes (Other)
  Sender: FDA-Public Use
  Company Number: US-ASTRAZENECA-2008UW18293

PATIENT
  Age: 70 Year
  Sex: Female

DRUGS (7)
  1. ARIMIDEX [Suspect]
     Indication: NEOPLASM MALIGNANT
     Route: 048
  2. MAXZIDE [Concomitant]
  3. CARDIZEM [Concomitant]
  4. OMEPRAZOLE [Concomitant]
  5. LISINOPRIL [Concomitant]
  6. VIT D [Concomitant]
  7. MULTI-VITAMIN [Concomitant]

REACTIONS (3)
  - BONE PAIN [None]
  - CARPAL TUNNEL SYNDROME [None]
  - NEUROPATHY PERIPHERAL [None]
